FAERS Safety Report 6954003 (Version 1)
Quarter: 2020Q3

REPORT INFORMATION
  Report Type: Report from Study
  Country: US (occurrence: US)
  Receive Date: 20090327
  Receipt Date: 20090327
  Transmission Date: 20201105
  Serious: Yes (Other)
  Sender: FDA-Public Use
  Company Number: US-ROCHE-622530

PATIENT
  Age: 75 Year
  Sex: Female

DRUGS (3)
  1. ASCRIPTIN [Suspect]
     Active Substance: ASPIRIN
     Indication: PAIN
     Dosage: DOSAGE: NOW AND THEN
     Route: 065
  2. IBANDRONIC ACID. [Suspect]
     Active Substance: IBANDRONIC ACID
     Indication: OSTEOPENIA
     Dosage: INDICATION: SHRUNK A COUPLE OF INCHES OSTEO
     Route: 065
     Dates: start: 200808
  3. ALLEGRA [Suspect]
     Active Substance: FEXOFENADINE HYDROCHLORIDE
     Indication: PRODUCT USED FOR UNKNOWN INDICATION
     Dosage: DOSAGE: NOW AND THEN
     Route: 065

REACTIONS (7)
  - Nervousness [Unknown]
  - Arthralgia [Unknown]
  - Loss of personal independence in daily activities [Unknown]
  - Wrist fracture [Unknown]
  - Fall [None]
  - Depression [Unknown]
  - Nausea [Unknown]

NARRATIVE: CASE EVENT DATE: 20090201
